FAERS Safety Report 8486543 (Version 2)
Quarter: 2012Q4

REPORT INFORMATION
  Report Type: 
  Country: AU (occurrence: AU)
  Receive Date: 20120402
  Receipt Date: 20121206
  Transmission Date: 20130627
  Serious: Yes (Hospitalization)
  Sender: FDA-Public Use
  Company Number: PHHY2012AU025641

PATIENT
  Age: 45 Year
  Sex: Female

DRUGS (4)
  1. CLOZARIL [Suspect]
     Dosage: 200 mg, UNK
     Dates: start: 20111130, end: 20120103
  2. CLOZARIL [Suspect]
     Dosage: 200 mg, UNK
     Dates: end: 20120106
  3. CLOZARIL [Suspect]
     Dosage: 200 mg, UNK
     Dates: end: 20120202
  4. CLOZARIL [Suspect]
     Dosage: UNK UKN, UNK
     Dates: start: 20121018

REACTIONS (9)
  - Feeling abnormal [Recovering/Resolving]
  - Asthenia [Recovered/Resolved]
  - Decreased appetite [Recovered/Resolved]
  - Lethargy [Recovered/Resolved]
  - Sedation [Recovered/Resolved]
  - Constipation [Recovered/Resolved]
  - Fatigue [Recovered/Resolved]
  - Antipsychotic drug level below therapeutic [Recovering/Resolving]
  - Drug ineffective [Recovered/Resolved]
